FAERS Safety Report 19115643 (Version 1)
Quarter: 2021Q2

REPORT INFORMATION
  Report Type: Report from Study
  Country: None (occurrence: BR)
  Receive Date: 20210409
  Receipt Date: 20210409
  Transmission Date: 20210717
  Serious: Yes (Disabling)
  Sender: FDA-Public Use
  Company Number: BR-ABBVIE-21K-020-3849201-00

PATIENT
  Age: 37 Year
  Sex: Female
  Weight: 74 kg

DRUGS (5)
  1. SKYRIZI [Suspect]
     Active Substance: RISANKIZUMAB-RZAA
     Indication: PSORIASIS
     Dosage: LOADING DOSE  ? WEEK 00
     Route: 058
     Dates: start: 20201006, end: 20201006
  2. FLUOXETINE [Concomitant]
     Active Substance: FLUOXETINE HYDROCHLORIDE
     Indication: ANXIOLYTIC THERAPY
     Dosage: UNSPECIFIED DOSE?UNKNOWN
  3. SKYRIZI [Suspect]
     Active Substance: RISANKIZUMAB-RZAA
     Dosage: UNSPECIFIED DOSE
     Route: 058
     Dates: start: 20210129, end: 20210129
  4. COSENTYX [Concomitant]
     Active Substance: SECUKINUMAB
     Indication: PSORIASIS
     Dosage: UNSPECIFIED DOSE
  5. SKYRIZI [Suspect]
     Active Substance: RISANKIZUMAB-RZAA
     Dosage: LOADING DOSE  ? WEEK 04
     Route: 058
     Dates: start: 20201103, end: 20201103

REACTIONS (6)
  - Pruritus [Not Recovered/Not Resolved]
  - C-reactive protein increased [Unknown]
  - Unevaluable event [Unknown]
  - Impaired driving ability [Unknown]
  - Insomnia [Unknown]
  - Loss of personal independence in daily activities [Unknown]

NARRATIVE: CASE EVENT DATE: 202011
